FAERS Safety Report 10073398 (Version 1)
Quarter: 2014Q2

REPORT INFORMATION
  Report Type: Spontaneous
  Country: US (occurrence: US)
  Receive Date: 20140411
  Receipt Date: 20140411
  Transmission Date: 20141212
  Serious: Yes (Life-Threatening, Hospitalization)
  Sender: FDA-Public Use
  Company Number: US-BRISTOL-MYERS SQUIBB COMPANY-20597977

PATIENT
  Age: 69 Year
  Sex: Female
  Weight: 95.24 kg

DRUGS (1)
  1. BYETTA [Suspect]

REACTIONS (4)
  - Pulmonary oedema [Unknown]
  - Renal disorder [Unknown]
  - Myocardial infarction [Unknown]
  - Injection site bruising [Unknown]
